FAERS Safety Report 15106044 (Version 4)
Quarter: 2018Q3

REPORT INFORMATION
  Report Type: Report from Study
  Country: DE (occurrence: DE)
  Receive Date: 20180704
  Receipt Date: 20180918
  Transmission Date: 20181010
  Serious: Yes (Congenital Anomaly, Other)
  Sender: FDA-Public Use
  Company Number: DE-AUROBINDO-AUR-APL-2018-033610

PATIENT
  Sex: Male
  Weight: 3.18 kg

DRUGS (4)
  1. OPIPRAMOL [Suspect]
     Active Substance: OPIPRAMOL
     Indication: PRODUCT USED FOR UNKNOWN INDICATION
     Dosage: EXPOSURE DURATION: 0?6+5 GW
     Route: 064
  2. LISINOPRIL TABLET [Suspect]
     Active Substance: LISINOPRIL
     Indication: PRODUCT USED FOR UNKNOWN INDICATION
     Dosage: 5 MG; EXPOSURE DURATION: 0?6+5 GW
     Route: 064
  3. DEQUALINIUM CHLORIDE [Suspect]
     Active Substance: DEQUALINIUM CHLORIDE
     Indication: PRODUCT USED FOR UNKNOWN INDICATION
     Dosage: UNK, 11?12 GW
     Route: 064
  4. NYSTATIN. [Suspect]
     Active Substance: NYSTATIN
     Indication: PRODUCT USED FOR UNKNOWN INDICATION
     Dosage: UNK, DRUG EXPOSURE: 20 GW
     Route: 064

REACTIONS (5)
  - Foetal exposure during pregnancy [Unknown]
  - Amniocentesis [Unknown]
  - Transposition of the great vessels [Unknown]
  - Atrial septal defect [Unknown]
  - Patent ductus arteriosus [Unknown]
